FAERS Safety Report 4890958-9 (Version None)
Quarter: 2006Q1

REPORT INFORMATION
  Report Type: 
  Country: None (occurrence: None)
  Receive Date: 20060125
  Receipt Date: 20051227
  Transmission Date: 20060701
  Serious: No
  Sender: FDA-Public Use
  Company Number: PHBS2005JP19079

PATIENT

DRUGS (2)
  1. DIOVAN [Suspect]
     Indication: HYPERTENSION
     Dosage: 40 MG/DAY
     Route: 048
     Dates: start: 20040528, end: 20051201
  2. ADALAT [Concomitant]
     Dosage: 20 MG, UNK
     Route: 048
     Dates: start: 20040528

REACTIONS (4)
  - AGRAPHIA [None]
  - COLD SWEAT [None]
  - HYPOGLYCAEMIA [None]
  - MEMORY IMPAIRMENT [None]
